FAERS Safety Report 13111326 (Version 16)
Quarter: 2020Q2

REPORT INFORMATION
  Report Type: Spontaneous
  Country: US (occurrence: US)
  Receive Date: 20170112
  Receipt Date: 20200512
  Transmission Date: 20200713
  Serious: Yes (Hospitalization, Other)
  Sender: FDA-Public Use
  Company Number: US-ACTELION-A-US2017-148216

PATIENT
  Age: 42 Year
  Sex: Female

DRUGS (13)
  1. REVATIO [Concomitant]
     Active Substance: SILDENAFIL CITRATE
  2. POTASSIUM [Concomitant]
     Active Substance: POTASSIUM
  3. NAPROXEN. [Concomitant]
     Active Substance: NAPROXEN
  4. COLCRYS [Concomitant]
     Active Substance: COLCHICINE
  5. LASIX [Concomitant]
     Active Substance: FUROSEMIDE
  6. OPSUMIT [Suspect]
     Active Substance: MACITENTAN
     Dosage: 10 MG, QD
     Route: 048
     Dates: start: 20190701
  7. IBUPROFEN. [Concomitant]
     Active Substance: IBUPROFEN
  8. TYLENOL WITH CODEINE [Concomitant]
     Active Substance: ACETAMINOPHEN\CODEINE PHOSPHATE
  9. ZOFRAN [Concomitant]
     Active Substance: ONDANSETRON HYDROCHLORIDE
  10. OPSUMIT [Suspect]
     Active Substance: MACITENTAN
     Dosage: UNK
     Route: 048
     Dates: start: 20161017
  11. MAGNESIUM [Concomitant]
     Active Substance: MAGNESIUM
  12. OPSUMIT [Suspect]
     Active Substance: MACITENTAN
     Indication: PULMONARY ARTERIAL HYPERTENSION
     Dosage: 10 MG, QD
     Route: 048
     Dates: start: 20161004
  13. AMBIEN [Concomitant]
     Active Substance: ZOLPIDEM TARTRATE

REACTIONS (23)
  - Malaise [Unknown]
  - Platelet count decreased [Not Recovered/Not Resolved]
  - Transient ischaemic attack [Unknown]
  - Sinusitis [Unknown]
  - Sinus congestion [Unknown]
  - Joint injury [Unknown]
  - Product dose omission [Unknown]
  - Condition aggravated [Recovered/Resolved]
  - Dyspnoea [Recovered/Resolved]
  - Chest pain [Recovered/Resolved]
  - Contusion [Not Recovered/Not Resolved]
  - Fall [Not Recovered/Not Resolved]
  - Cerebrovascular accident [Recovered/Resolved]
  - Wrist surgery [Unknown]
  - Dizziness [Recovered/Resolved]
  - Thrombocytopenia [Unknown]
  - Pulmonary arterial hypertension [Recovered/Resolved]
  - Hypoaesthesia [Not Recovered/Not Resolved]
  - Vaginal haemorrhage [Recovered/Resolved]
  - Paraesthesia [Not Recovered/Not Resolved]
  - Arthralgia [Not Recovered/Not Resolved]
  - Wrist fracture [Unknown]
  - Costochondritis [Recovered/Resolved]

NARRATIVE: CASE EVENT DATE: 201611
